FAERS Safety Report 6802963-3 (Version None)
Quarter: 2010Q2

REPORT INFORMATION
  Report Type: 
  Country: None (occurrence: None)
  Receive Date: 20100628
  Receipt Date: 20100615
  Transmission Date: 20101027
  Serious: Yes (Other)
  Sender: FDA-Public Use
  Company Number: PHHY2010JP39276

PATIENT
  Age: 50 Year
  Sex: Male

DRUGS (1)
  1. RITALIN [Suspect]
     Indication: NARCOLEPSY
     Dosage: 2 DF, TID
     Route: 048

REACTIONS (1)
  - HALLUCINATION, AUDITORY [None]
